FAERS Safety Report 11927435 (Version 1)
Quarter: 2016Q1

REPORT INFORMATION
  Report Type: Spontaneous
  Country: US (occurrence: None)
  Receive Date: 20160115
  Receipt Date: 20160115
  Transmission Date: 20160526
  Serious: Yes (Hospitalization)
  Sender: FDA-Public Use
  Company Number: None

PATIENT
  Age: 42 Year
  Sex: Female
  Weight: 53.52 kg

DRUGS (5)
  1. XANAX [Concomitant]
     Active Substance: ALPRAZOLAM
  2. SEROQUEL [Concomitant]
     Active Substance: QUETIAPINE FUMARATE
  3. HORMONE CREAM [Concomitant]
  4. LAMICTAL [Concomitant]
     Active Substance: LAMOTRIGINE
  5. CLINDAMYCIN [Suspect]
     Active Substance: CLINDAMYCIN\CLINDAMYCIN PHOSPHATE
     Indication: VAGINAL INFECTION
     Dosage: 1 PILL
     Route: 048
     Dates: start: 20151130, end: 20151207

REACTIONS (2)
  - Clostridium difficile colitis [None]
  - Pain [None]

NARRATIVE: CASE EVENT DATE: 20160104
